FAERS Safety Report 8052877-9 (Version None)
Quarter: 2012Q1

REPORT INFORMATION
  Report Type: 
  Country: None (occurrence: None)
  Receive Date: 20120117
  Receipt Date: 20120117
  Transmission Date: 20120608
  Serious: Yes (Hospitalization)
  Sender: FDA-Public Use
  Company Number: None

PATIENT
  Sex: Female
  Weight: 82.6 kg

DRUGS (6)
  1. CYCLOPHOSPHAMIDE [Suspect]
     Dosage: 1680 MG
  2. ETOPOSIDE [Suspect]
     Dosage: 448 MG
  3. PREDNISONE [Suspect]
     Dosage: 1200 MG
  4. RITUXIMAB (MOAB C2B8 ANTI CD20 CHIMERIC) [Suspect]
     Dosage: 713 MG
  5. DOXORUBICIN HCL [Suspect]
     Dosage: 89.6 MG
  6. VINCRISTINE SULFATE [Suspect]
     Dosage: 1.52 MG

REACTIONS (9)
  - GINGIVAL DISORDER [None]
  - HYPOPHAGIA [None]
  - NEUTROPHIL COUNT DECREASED [None]
  - DEHYDRATION [None]
  - ORAL PAIN [None]
  - PYREXIA [None]
  - MUCOSAL INFLAMMATION [None]
  - OROPHARYNGEAL PLAQUE [None]
  - TONGUE ULCERATION [None]
